FAERS Safety Report 9160392 (Version 1)
Quarter: 2013Q1

REPORT INFORMATION
  Report Type: Spontaneous
  Country: US (occurrence: US)
  Receive Date: 20130313
  Receipt Date: 20130313
  Transmission Date: 20140127
  Serious: No
  Sender: FDA-Public Use
  Company Number: US-BAYER-2013-030066

PATIENT
  Sex: 0

DRUGS (4)
  1. ALEVE CAPLET/TABLET,MIDOL EXTENDED RELIEF CAPLET [Suspect]
     Dosage: UNK, DF, Q4HR
  2. SENEKOT S [Concomitant]
  3. VICODIN [Concomitant]
  4. ANTI NAUSEA MED [Concomitant]

REACTIONS (2)
  - Discomfort [None]
  - Inappropriate schedule of drug administration [None]
